FAERS Safety Report 12679238 (Version 1)
Quarter: 2016Q3

REPORT INFORMATION
  Report Type: Spontaneous
  Country: US (occurrence: None)
  Receive Date: 20160823
  Receipt Date: 20160823
  Transmission Date: 20161109
  Serious: Yes (Other)
  Sender: FDA-Public Use
  Company Number: None

PATIENT
  Age: 48 Year
  Sex: Female
  Weight: 58.97 kg

DRUGS (5)
  1. JUICY PLUS GUMMY SUPPLEMENTS [Concomitant]
  2. ALLEGRA-D [Concomitant]
     Active Substance: FEXOFENADINE\PSEUDOEPHEDRINE
  3. VITAMIN D3 [Concomitant]
     Active Substance: CHOLECALCIFEROL
  4. VIT B-COMPLEX [Concomitant]
  5. ESTRADIOL 0.025MG DIS MYLA, 0.025 MG [Suspect]
     Active Substance: ESTRADIOL
     Indication: HOT FLUSH
     Dosage: 2 PACHES 2X PER WEEK APPLIED AS MEDICAL PACH TO SKIN
     Route: 062
     Dates: start: 20160805, end: 20160819

REACTIONS (3)
  - Drug dose omission [None]
  - Product label confusion [None]
  - Headache [None]

NARRATIVE: CASE EVENT DATE: 20160819
